FAERS Safety Report 18231082 (Version 2)
Quarter: 2020Q4

REPORT INFORMATION
  Report Type: Spontaneous
  Country: DE (occurrence: DE)
  Receive Date: 20200904
  Receipt Date: 20201207
  Transmission Date: 20210113
  Serious: Yes (Life-Threatening, Hospitalization, Other)
  Sender: FDA-Public Use
  Company Number: DE-ACCORD-198513

PATIENT
  Age: 21 Year
  Sex: Male
  Weight: 56 kg

DRUGS (3)
  1. CLONAZEPAM. [Suspect]
     Active Substance: CLONAZEPAM
     Dosage: 180 NG/ML
     Route: 065
  2. PREGABALIN. [Suspect]
     Active Substance: PREGABALIN
     Dosage: 600 NG/ML
     Route: 065
  3. MDMA [Suspect]
     Active Substance: MIDOMAFETAMINE
     Dosage: 180 NG/ML
     Route: 065

REACTIONS (21)
  - Drug abuse [Unknown]
  - Toxicity to various agents [Unknown]
  - Blood lactic acid increased [Recovered/Resolved]
  - Rhabdomyolysis [Recovered/Resolved]
  - Acute kidney injury [Recovered/Resolved]
  - Dehydration [Recovered/Resolved]
  - Hypoglycaemia [Recovered/Resolved]
  - Mydriasis [Recovered/Resolved]
  - Gastrointestinal haemorrhage [Recovered/Resolved]
  - Muscle haemorrhage [Unknown]
  - Platelet count decreased [Recovered/Resolved]
  - Hyperthermia [Recovered/Resolved]
  - Tachycardia [Recovered/Resolved]
  - Coagulopathy [Recovered/Resolved]
  - Generalised tonic-clonic seizure [Recovered/Resolved]
  - Haemorrhage [Recovered/Resolved]
  - Nervous system disorder [Recovered/Resolved]
  - Haemoglobin decreased [Recovered/Resolved]
  - Hyperpyrexia [Recovered/Resolved]
  - Renal failure [Recovered/Resolved]
  - Hepatic failure [Recovered/Resolved]
